FAERS Safety Report 23678954 (Version 1)
Quarter: 2024Q1

REPORT INFORMATION
  Report Type: Spontaneous
  Country: US (occurrence: US)
  Receive Date: 20240327
  Receipt Date: 20240327
  Transmission Date: 20240410
  Serious: No
  Sender: FDA-Public Use
  Company Number: US-TEVA-VS-3144591

PATIENT
  Sex: Female

DRUGS (1)
  1. FORMOTEROL FUMARATE [Suspect]
     Active Substance: FORMOTEROL FUMARATE
     Indication: Chronic obstructive pulmonary disease
     Dosage: DOSAGE: 20 MCG/2ML FORMOTEROL FUMARATE INHALATION SOLUTION 2 ML
     Route: 065
     Dates: start: 20231227

REACTIONS (2)
  - Dyspnoea [Unknown]
  - Drug ineffective [Unknown]
